FAERS Safety Report 7148847-5 (Version None)
Quarter: 2010Q4

REPORT INFORMATION
  Report Type: 
  Country: None (occurrence: None)
  Receive Date: 20101209
  Receipt Date: 20101129
  Transmission Date: 20110411
  Serious: Yes (Hospitalization)
  Sender: FDA-Public Use
  Company Number: PHHY2010DE81454

PATIENT
  Sex: Male
  Weight: 62 kg

DRUGS (2)
  1. AFINITOR [Suspect]
     Indication: METASTATIC RENAL CELL CARCINOMA
     Dosage: 10MG/D
     Route: 048
     Dates: start: 20100712
  2. AFINITOR [Suspect]
     Dosage: 05 MG/D
     Route: 048

REACTIONS (2)
  - ECZEMA [None]
  - ULCER [None]
